FAERS Safety Report 21354864 (Version 1)
Quarter: 2022Q3

REPORT INFORMATION
  Report Type: Spontaneous
  Country: CA (occurrence: CA)
  Receive Date: 20220920
  Receipt Date: 20220920
  Transmission Date: 20221027
  Serious: Yes (Other)
  Sender: FDA-Public Use
  Company Number: CA-GLAXOSMITHKLINE-CA2022GSK132394

PATIENT

DRUGS (9)
  1. SUMATRIPTAN SUCCINATE [Suspect]
     Active Substance: SUMATRIPTAN SUCCINATE
     Indication: Migraine
     Dosage: UNK UNK, Z AS NEEDED
  2. SUMATRIPTAN SUCCINATE [Suspect]
     Active Substance: SUMATRIPTAN SUCCINATE
     Dosage: 50 MG, Z SINGLE DOSE
     Route: 048
  3. DOXYLAMINE SUCCINATE\PYRIDOXINE HYDROCHLORIDE [Suspect]
     Active Substance: DOXYLAMINE SUCCINATE\PYRIDOXINE HYDROCHLORIDE
     Indication: Morning sickness
     Dosage: 10 MG, Z AS NEEDED (10 MG OF EACH IN THE MORNING AND AFTERNOON)
     Route: 048
  4. DOXYLAMINE SUCCINATE\PYRIDOXINE HYDROCHLORIDE [Suspect]
     Active Substance: DOXYLAMINE SUCCINATE\PYRIDOXINE HYDROCHLORIDE
     Dosage: 20 MG, Z AS NEEDED (20 MG OF EACH IN THE EVENING)
     Route: 048
  5. DIMENHYDRINATE [Suspect]
     Active Substance: DIMENHYDRINATE
     Indication: Morning sickness
     Dosage: 50 MG, Z (50 MG EVERY 4 HOURS REGULARLY)
     Route: 042
  6. ONDANSETRON [Suspect]
     Active Substance: ONDANSETRON
     Indication: Morning sickness
     Dosage: 8 MG, Z (8 MG EVERY 8 HOURS AS NEEDED)
     Route: 042
  7. FAMOTIDINE [Suspect]
     Active Substance: FAMOTIDINE
     Indication: Morning sickness
     Dosage: 20 MG DAILY
     Route: 042
  8. PROCHLORPERAZINE [Suspect]
     Active Substance: PROCHLORPERAZINE
     Indication: Morning sickness
     Dosage: 5 MG, QID (EVERY 6 HOURS)
     Route: 048
  9. PROCHLORPERAZINE [Suspect]
     Active Substance: PROCHLORPERAZINE
     Dosage: 10 MG, QID (EVERY 6 HOURS)
     Route: 048

REACTIONS (16)
  - Serotonin syndrome [Recovered/Resolved]
  - Abortion spontaneous [Unknown]
  - Myalgia [Recovered/Resolved]
  - Hypertonia [Recovered/Resolved]
  - Hyperhidrosis [Recovered/Resolved]
  - Tremor [Recovered/Resolved]
  - Emotional distress [Recovered/Resolved]
  - Tachycardia [Recovered/Resolved]
  - Pyrexia [Recovered/Resolved]
  - Hyperreflexia [Recovered/Resolved]
  - Clonus [Recovered/Resolved]
  - Extensor plantar response [Recovered/Resolved]
  - Muscle contractions involuntary [Recovered/Resolved]
  - Sinus tachycardia [Recovered/Resolved]
  - Muscle spasticity [Recovered/Resolved]
  - Exposure during pregnancy [Unknown]
